FAERS Safety Report 13522717 (Version 8)
Quarter: 2017Q3

REPORT INFORMATION
  Report Type: Spontaneous
  Country: US (occurrence: US)
  Receive Date: 20170508
  Receipt Date: 20170830
  Transmission Date: 20171127
  Serious: Yes (Hospitalization, Other)
  Sender: FDA-Public Use
  Company Number: US-AMGEN-USASP2017068164

PATIENT
  Age: 73 Year
  Sex: Female

DRUGS (35)
  1. PREDNISONE. [Concomitant]
     Active Substance: PREDNISONE
     Indication: RHEUMATOID ARTHRITIS
     Dosage: UNK
     Dates: start: 2008
  2. ARAVA [Concomitant]
     Active Substance: LEFLUNOMIDE
     Indication: RHEUMATOID ARTHRITIS
     Dosage: UNK
  3. TAMIFLU [Concomitant]
     Active Substance: OSELTAMIVIR PHOSPHATE
     Dosage: UNK
     Dates: start: 201703
  4. CYCLOBENZAPRINE. [Concomitant]
     Active Substance: CYCLOBENZAPRINE
     Dosage: 5 MG, UNK AT BEDTIME
  5. ENBREL [Suspect]
     Active Substance: ETANERCEPT
     Indication: RHEUMATOID ARTHRITIS
     Dosage: 50 MG, QWK
     Route: 058
     Dates: start: 2008, end: 2014
  6. MTX [Concomitant]
     Active Substance: METHOTREXATE SODIUM
  7. XARELTO [Concomitant]
     Active Substance: RIVAROXABAN
     Dosage: 15 MG, QD
     Route: 048
  8. VITAMINE D [Concomitant]
     Dosage: 50000 IU, QWK
     Route: 048
  9. PERFECT IRON [Concomitant]
     Dosage: 25 MG, QD
     Route: 048
  10. PROBIOTIC [Concomitant]
     Active Substance: PROBIOTICS NOS
     Dosage: 1 DF, QD
     Route: 048
  11. VITA PLUS [Concomitant]
     Dosage: 1 DF, QD
     Route: 048
  12. ESIDRIX [Concomitant]
     Active Substance: HYDROCHLOROTHIAZIDE
     Dosage: 25 MG, QD
     Route: 048
  13. OMEGA 3 [Concomitant]
     Active Substance: OMEGA-3 FATTY ACIDS
     Dosage: 1 DF, QD
     Route: 048
  14. CALCIUM 600 + D [Concomitant]
     Active Substance: CALCIUM\VITAMIN D
     Dosage: 600 MG, QD
     Route: 048
  15. PNEUMOVAX 23 [Concomitant]
     Active Substance: PNEUMOCOCCAL VACCINE, POLYVALENT 23
     Dosage: UNK
     Dates: start: 2015
  16. MELATONIN [Concomitant]
     Active Substance: MELATONIN
     Dosage: 5 MG, AT BEDTIME
     Route: 048
  17. UBIDECARENONE [Concomitant]
     Active Substance: UBIDECARENONE
     Dosage: 200 MG, AT BEDTIME
     Route: 048
  18. XELJANZ XR [Suspect]
     Active Substance: TOFACITINIB CITRATE
     Indication: RHEUMATOID ARTHRITIS
     Dosage: 11 MG, QD
     Route: 048
     Dates: start: 20170223, end: 20170801
  19. PLAQUENIL [Concomitant]
     Active Substance: HYDROXYCHLOROQUINE SULFATE
  20. VALERIAN ROOT PLUS [Concomitant]
     Dosage: 1 DF, UNK (BEDTIME)
     Route: 048
  21. BETAPACE [Concomitant]
     Active Substance: SOTALOL HYDROCHLORIDE
     Dosage: 80 MG, BID
     Route: 048
  22. PREDNISONE. [Concomitant]
     Active Substance: PREDNISONE
     Dosage: 5 MG, BID
  23. E-400 [Concomitant]
     Dosage: 400 IU, QD
  24. DELTASONE [Concomitant]
     Active Substance: PREDNISONE
     Dosage: 10 MG, QD
     Route: 048
  25. ULTRAM [Concomitant]
     Active Substance: TRAMADOL HYDROCHLORIDE
     Dosage: 50 MG, BID
     Route: 048
  26. ENBREL [Suspect]
     Active Substance: ETANERCEPT
     Dosage: UNK
     Route: 065
     Dates: end: 20170223
  27. PRILOSEC [Concomitant]
     Active Substance: OMEPRAZOLE MAGNESIUM
     Indication: PEPTIC ULCER
     Dosage: 20 MG, UNK
  28. LIDODERM [Concomitant]
     Active Substance: LIDOCAINE
     Dosage: 1 DF (PATCH), UNK
     Route: 061
  29. CARAFATE [Concomitant]
     Active Substance: SUCRALFATE
     Dosage: 1 G, QID
     Route: 048
  30. GRAPE SEED EXTRACT [Concomitant]
     Active Substance: GRAPE SEED EXTRACT
     Dosage: 2 DF, QD
     Route: 048
  31. GOLD [Concomitant]
     Active Substance: GOLD
  32. DHEA [Concomitant]
     Active Substance: PRASTERONE
     Dosage: 10 MG, QD
     Route: 048
  33. AVAPRO [Concomitant]
     Active Substance: IRBESARTAN
     Dosage: 300 MG, AT BEDTIME
     Route: 048
  34. VESICARE [Concomitant]
     Active Substance: SOLIFENACIN SUCCINATE
     Dosage: 5 MG, QD
     Route: 048
  35. LOVENOX [Concomitant]
     Active Substance: ENOXAPARIN SODIUM
     Dosage: UNK

REACTIONS (28)
  - Chronic obstructive pulmonary disease [Unknown]
  - Sepsis [Unknown]
  - Blood glucose increased [Unknown]
  - Mean cell haemoglobin decreased [Unknown]
  - Osteoarthritis [Unknown]
  - Rheumatoid arthritis [Unknown]
  - Benign neoplasm of thyroid gland [Unknown]
  - Lymphocyte count decreased [Unknown]
  - Red cell distribution width increased [Unknown]
  - Acute kidney injury [Recovering/Resolving]
  - Pneumonia [Recovering/Resolving]
  - Platelet count increased [Unknown]
  - Atrial fibrillation [Recovering/Resolving]
  - Immunodeficiency [Unknown]
  - Haemoglobin decreased [Unknown]
  - Influenza [Unknown]
  - Peptic ulcer [Unknown]
  - White blood cell count increased [Unknown]
  - Sinusitis [Unknown]
  - Thyroid mass [Unknown]
  - Urine analysis abnormal [Unknown]
  - Mean cell haemoglobin concentration decreased [Unknown]
  - Vitiligo [Unknown]
  - Left ventricular failure [Unknown]
  - Neutrophil count increased [Unknown]
  - Blood urea increased [Unknown]
  - Haematocrit decreased [Unknown]
  - Renal cyst [Unknown]

NARRATIVE: CASE EVENT DATE: 201412
